FAERS Safety Report 9532213 (Version 1)
Quarter: 2013Q2

REPORT INFORMATION
  Report Type: Spontaneous
  Country: BE (occurrence: None)
  Receive Date: 20130403
  Receipt Date: 20130403
  Transmission Date: 20140414
  Serious: No
  Sender: FDA-Public Use
  Company Number: US-2012-10347

PATIENT
  Age: 7 Year
  Sex: 0

DRUGS (4)
  1. BUSUFLEX [Suspect]
     Indication: STEM CELL TRANSPLANT
  2. IMMUNOGLOBULIN HUMAN NORMAL (IMMUNOGLOBULIN HUMAN NORMAL) (IMMUNOGLOBULIN HUMAN NORMAL) [Concomitant]
  3. ACYCLOVIR (ACICLOVIR) (ACICLOVIR) [Concomitant]
  4. CO-TRIMOXAZOLE (SULFAMETHOXAZOLE, TRIMETHOPRIM) [Concomitant]

REACTIONS (1)
  - Epstein-Barr viraemia [None]
